FAERS Safety Report 12549241 (Version 1)
Quarter: 2016Q3

REPORT INFORMATION
  Report Type: Spontaneous
  Country: PT (occurrence: PT)
  Receive Date: 20160711
  Receipt Date: 20160711
  Transmission Date: 20161109
  Serious: Yes (Other)
  Sender: FDA-Public Use
  Company Number: PT-TEVA-672590ISR

PATIENT
  Age: 50 Year
  Sex: Female

DRUGS (13)
  1. DULCOLAX NOS [Concomitant]
     Active Substance: BISACODYL OR DOCUSATE SODIUM
     Indication: CONSTIPATION
     Dosage: 5 MILLIGRAM DAILY;
     Route: 048
     Dates: start: 20160427, end: 20160520
  2. LINEZOLID. [Suspect]
     Active Substance: LINEZOLID
     Indication: UROSEPSIS
     Dosage: 1200 MILLIGRAM DAILY;
     Route: 048
     Dates: start: 20160427, end: 20160429
  3. LACTULOSE. [Concomitant]
     Active Substance: LACTULOSE
     Indication: CONSTIPATION
     Dosage: 20 GRAM DAILY;
     Route: 048
     Dates: start: 20160425, end: 20160520
  4. CLORETO DE POT?SSIO SANDOZ RETARD [Concomitant]
     Indication: HYPOKALAEMIA
     Dosage: 1200 MILLIGRAM DAILY;
     Route: 048
     Dates: start: 20160427, end: 20160428
  5. RIVOTRIL [Concomitant]
     Active Substance: CLONAZEPAM
     Indication: EPILEPSY
     Dosage: 3 MILLIGRAM DAILY;
     Route: 048
  6. CEFUROXIMA [Concomitant]
     Indication: UROSEPSIS
     Dosage: 1000 MILLIGRAM DAILY;
     Route: 048
     Dates: start: 20160427, end: 20160506
  7. MEROPENEM HIKMA [Suspect]
     Active Substance: MEROPENEM
     Indication: UROSEPSIS
     Dosage: 3000 MILLIGRAM DAILY;
     Route: 042
     Dates: start: 20160424, end: 20160427
  8. LIORESAL [Concomitant]
     Active Substance: BACLOFEN
     Indication: EPILEPSY
     Dosage: 20 MILLIGRAM DAILY;
     Route: 048
  9. OMEPRAZOL [Concomitant]
     Active Substance: OMEPRAZOLE
     Indication: PROPHYLAXIS
     Dosage: 20 MILLIGRAM DAILY;
     Route: 048
     Dates: start: 20160427, end: 20160520
  10. FENTANILO [Concomitant]
     Active Substance: FENTANYL
     Indication: PAIN
     Route: 062
  11. ?CIDO VALPR?ICO GENERIS [Suspect]
     Active Substance: VALPROATE SODIUM
     Indication: EPILEPSY
     Dosage: 1500 MILLIGRAM DAILY;
     Route: 048
     Dates: start: 20160425, end: 20160502
  12. TEGRETOL [Concomitant]
     Active Substance: CARBAMAZEPINE
     Indication: EPILEPSY
     Dosage: 400 MILLIGRAM DAILY;
     Route: 048
  13. TROMALYT 150 MG [Concomitant]
     Indication: PRODUCT USED FOR UNKNOWN INDICATION
     Route: 048

REACTIONS (3)
  - Myoclonus [Recovered/Resolved]
  - Seizure cluster [Recovered/Resolved]
  - Drug interaction [None]

NARRATIVE: CASE EVENT DATE: 20160428
